FAERS Safety Report 25264671 (Version 2)
Quarter: 2025Q3

REPORT INFORMATION
  Report Type: Spontaneous
  Country: US (occurrence: US)
  Receive Date: 20250502
  Receipt Date: 20250801
  Transmission Date: 20251021
  Serious: No
  Sender: PFIZER
  Company Number: US-PFIZER INC-202500091789

PATIENT
  Age: 66 Year
  Sex: Female

DRUGS (3)
  1. RITLECITINIB [Suspect]
     Active Substance: RITLECITINIB
     Dosage: 50 MG, DAILY
     Route: 048
  2. TOFACITINIB CITRATE [Suspect]
     Active Substance: TOFACITINIB CITRATE
     Dosage: 2 %, DAILY (2% IN VANISHING CREAM 30G APPLY TO HAIR LOSS QHS)
     Route: 061
  3. TOFACITINIB CITRATE [Suspect]
     Active Substance: TOFACITINIB CITRATE
     Dosage: 4 %, DAILY (4% CREAM 30GM APPLY TOPICALLY AT BEDTIME)
     Route: 061

REACTIONS (4)
  - Product prescribing error [Unknown]
  - Product use issue [Unknown]
  - Off label use [Unknown]
  - Urinary tract infection [Unknown]
